FAERS Safety Report 21348499 (Version 9)
Quarter: 2023Q4

REPORT INFORMATION
  Report Type: Report from Study
  Country: US (occurrence: US)
  Receive Date: 20220919
  Receipt Date: 20231107
  Transmission Date: 20240109
  Serious: Yes (Hospitalization)
  Sender: FDA-Public Use
  Company Number: US-BAUSCH-BL-2022-021913

PATIENT
  Age: 82 Year
  Sex: Male

DRUGS (5)
  1. XIFAXAN [Suspect]
     Active Substance: RIFAXIMIN
     Indication: Hepatic encephalopathy
     Dosage: STARTED 4 YEARS AGO
     Route: 048
     Dates: start: 2021, end: 202206
  2. XIFAXAN [Suspect]
     Active Substance: RIFAXIMIN
     Route: 065
     Dates: start: 20220711
  3. XIFAXAN [Suspect]
     Active Substance: RIFAXIMIN
     Route: 048
     Dates: start: 20220811, end: 202303
  4. XIFAXAN [Suspect]
     Active Substance: RIFAXIMIN
     Route: 048
     Dates: start: 2023, end: 2023
  5. XIFAXAN [Suspect]
     Active Substance: RIFAXIMIN
     Dosage: 1 TAB IN THE MORNING AND HALF A TAB IN THE EVENING
     Route: 048

REACTIONS (9)
  - Hip fracture [Recovered/Resolved]
  - Femur fracture [Recovered/Resolved]
  - Fall [Recovered/Resolved]
  - Toothache [Recovered/Resolved]
  - Stubbornness [Unknown]
  - Hypersomnia [Unknown]
  - Therapy interrupted [Unknown]
  - Intentional dose omission [Unknown]
  - Treatment noncompliance [Unknown]

NARRATIVE: CASE EVENT DATE: 20220101
